FAERS Safety Report 9155612 (Version 1)
Quarter: 2013Q1

REPORT INFORMATION
  Report Type: Spontaneous
  Country: ZA (occurrence: ZA)
  Receive Date: 20130311
  Receipt Date: 20130311
  Transmission Date: 20140127
  Serious: Yes (Death)
  Sender: FDA-Public Use
  Company Number: ZA-VIIV HEALTHCARE LIMITED-B0873375A

PATIENT
  Age: 22 Year
  Sex: Female

DRUGS (3)
  1. LAMIVUDINE-HIV [Suspect]
     Indication: HIV INFECTION
     Route: 065
  2. NEVIRAPINE [Suspect]
     Indication: HIV INFECTION
     Route: 065
  3. TENOFOVIR [Suspect]
     Indication: HIV INFECTION
     Route: 065

REACTIONS (9)
  - Hepatic failure [Fatal]
  - Restlessness [Unknown]
  - Jaundice [Unknown]
  - Confusional state [Unknown]
  - Haemorrhage [Unknown]
  - Stillbirth [Unknown]
  - Convulsion [Unknown]
  - Cardio-respiratory arrest [Unknown]
  - Exposure during pregnancy [Unknown]
